FAERS Safety Report 5386972-X (Version None)
Quarter: 2007Q3

REPORT INFORMATION
  Report Type: 
  Country: None (occurrence: None)
  Receive Date: 20070713
  Receipt Date: 20070703
  Transmission Date: 20080115
  Serious: Yes (Other)
  Sender: FDA-Public Use
  Company Number: DE-PFIZER INC-2007055294

PATIENT
  Age: 85 Year

DRUGS (1)
  1. LYRICA [Suspect]
     Route: 048

REACTIONS (1)
  - OLIGURIA [None]
